FAERS Safety Report 13656196 (Version 3)
Quarter: 2017Q3

REPORT INFORMATION
  Report Type: Report from Study
  Country: CA (occurrence: CA)
  Receive Date: 20170615
  Receipt Date: 20170815
  Transmission Date: 20171127
  Serious: Yes (Hospitalization, Other)
  Sender: FDA-Public Use
  Company Number: CA-INCYTE CORPORATION-2017IN004566

PATIENT

DRUGS (7)
  1. VISMODEGIB. [Concomitant]
     Active Substance: VISMODEGIB
     Dosage: 50 MG, QD
     Route: 065
  2. METFORMIN [Concomitant]
     Active Substance: METFORMIN HYDROCHLORIDE
     Indication: PRODUCT USED FOR UNKNOWN INDICATION
     Route: 065
  3. CRESTOR [Concomitant]
     Active Substance: ROSUVASTATIN CALCIUM
     Indication: PRODUCT USED FOR UNKNOWN INDICATION
     Route: 065
  4. VISMODEGIB. [Concomitant]
     Active Substance: VISMODEGIB
     Indication: PRODUCT USED FOR UNKNOWN INDICATION
     Dosage: 50 MG, QD
     Route: 065
  5. ZOLOFT [Concomitant]
     Active Substance: SERTRALINE HYDROCHLORIDE
     Indication: PRODUCT USED FOR UNKNOWN INDICATION
     Route: 065
  6. JAKAVI [Suspect]
     Active Substance: RUXOLITINIB
     Indication: MYELOFIBROSIS
     Dosage: 15 MG, BID
     Route: 048
     Dates: start: 2016
  7. VISMODEGIB. [Concomitant]
     Active Substance: VISMODEGIB
     Dosage: 50 MG, QD
     Route: 065

REACTIONS (10)
  - White blood cell count decreased [Unknown]
  - Ageusia [Unknown]
  - Myalgia [Unknown]
  - Dysgeusia [Unknown]
  - Septic shock [Unknown]
  - Weight decreased [Unknown]
  - Haemoglobin decreased [Recovering/Resolving]
  - Alopecia [Unknown]
  - Platelet count decreased [Unknown]
  - Madarosis [Unknown]

NARRATIVE: CASE EVENT DATE: 201610
